FAERS Safety Report 19744420 (Version 1)
Quarter: 2021Q3

REPORT INFORMATION
  Report Type: Spontaneous
  Country: US (occurrence: US)
  Receive Date: 20210825
  Receipt Date: 20210825
  Transmission Date: 20211014
  Serious: No
  Sender: FDA-Public Use
  Company Number: US-PFIZER INC-2021570517

PATIENT
  Age: 38 Year
  Sex: Female
  Weight: 83.1 kg

DRUGS (1)
  1. MEDROXYPROGESTERONE ACETATE. [Suspect]
     Active Substance: MEDROXYPROGESTERONE ACETATE
     Indication: HAEMORRHAGE
     Dosage: 10 MG, DAILY(1 TABLET EVERY DAY FOR 10 DAYS)
     Route: 048
     Dates: start: 2021

REACTIONS (2)
  - Off label use [Unknown]
  - Drug ineffective for unapproved indication [Unknown]

NARRATIVE: CASE EVENT DATE: 2021
